FAERS Safety Report 7777120-7 (Version None)
Quarter: 2011Q3

REPORT INFORMATION
  Report Type: 
  Country: None (occurrence: None)
  Receive Date: 20110926
  Receipt Date: 20110912
  Transmission Date: 20111222
  Serious: Yes (Other)
  Sender: FDA-Public Use
  Company Number: US-BAYER-2011-003058

PATIENT
  Age: 27 Year
  Sex: Female
  Weight: 77.098 kg

DRUGS (2)
  1. YAZ [Suspect]
     Indication: CONTRACEPTION
     Dosage: UNK
     Route: 048
     Dates: start: 20061101, end: 20061201
  2. YAZ [Suspect]
     Dosage: UNK
     Dates: start: 20071001, end: 20071201

REACTIONS (14)
  - DEEP VEIN THROMBOSIS [None]
  - PREMATURE DELIVERY [None]
  - PAIN IN EXTREMITY [None]
  - PRE-ECLAMPSIA [None]
  - DYSPNOEA [None]
  - UTERINE CONTRACTIONS DURING PREGNANCY [None]
  - PAIN [None]
  - OEDEMA PERIPHERAL [None]
  - PLACENTAL INFARCTION [None]
  - CHEST PAIN [None]
  - PREGNANCY [None]
  - FOETAL HYPOKINESIA [None]
  - HYPERTENSION [None]
  - DIZZINESS [None]
